FAERS Safety Report 24538956 (Version 2)
Quarter: 2024Q4

REPORT INFORMATION
  Report Type: Spontaneous
  Country: US (occurrence: US)
  Receive Date: 20241023
  Receipt Date: 20241029
  Transmission Date: 20250115
  Serious: Yes (Hospitalization)
  Sender: AMGEN
  Company Number: US-AMGEN-USASP2024207093

PATIENT
  Age: 18 Year
  Sex: Male
  Weight: 79.9 kg

DRUGS (2)
  1. BLINCYTO [Suspect]
     Active Substance: BLINATUMOMAB
     Indication: Acute lymphocytic leukaemia
     Dosage: 10 MICROGRAM, QD, DOSE ORDERED: 76.25 MCG (10MCG/DAY), DOSE REQUESTED: 105 MCG (EVERY 24 HOUR CONTIN
     Route: 040
  2. BLINCYTO [Suspect]
     Active Substance: BLINATUMOMAB
     Dosage: UNK, RESUMED TREATMENT AGAIN
     Route: 040
     Dates: start: 202410

REACTIONS (1)
  - Incorrect dose administered by device [Unknown]

NARRATIVE: CASE EVENT DATE: 20241010
